FAERS Safety Report 12616088 (Version 1)
Quarter: 2016Q3

REPORT INFORMATION
  Report Type: Spontaneous
  Country: DE (occurrence: DE)
  Receive Date: 20160802
  Receipt Date: 20160802
  Transmission Date: 20161109
  Serious: Yes (Disabling, Other)
  Sender: FDA-Public Use
  Company Number: DE-ELI_LILLY_AND_COMPANY-DE201607009258

PATIENT
  Age: 21 Year
  Sex: Male

DRUGS (11)
  1. DOXEPIN [Concomitant]
     Active Substance: DOXEPIN
     Indication: DEPRESSION
     Dosage: UNK UNK, UNKNOWN
     Dates: start: 2005, end: 2007
  2. PAROXETIN                          /00830801/ [Suspect]
     Active Substance: PAROXETINE HYDROCHLORIDE
     Indication: DEPRESSION
     Dosage: UNK, UNKNOWN
     Route: 065
     Dates: start: 2002, end: 2003
  3. TAVOR (LORAZEPAM) [Suspect]
     Active Substance: LORAZEPAM
     Indication: DEPRESSION
     Dosage: UNK, PRN
     Route: 065
  4. OPIPRAMOL [Concomitant]
     Active Substance: OPIPRAMOL
     Indication: DEPRESSION
     Dosage: UNK UNK, UNKNOWN
     Route: 065
     Dates: start: 2009, end: 2009
  5. TRANCOLON [Concomitant]
     Active Substance: MEPENZOLATE BROMIDE
     Indication: MUSCLE TIGHTNESS
     Dosage: UNK UNK, UNKNOWN
     Dates: start: 2013, end: 2014
  6. ZYPREXA [Suspect]
     Active Substance: OLANZAPINE
     Indication: DEPRESSION
     Dosage: UNK, UNKNOWN
     Route: 065
     Dates: start: 2004, end: 2005
  7. CYMBALTA [Concomitant]
     Active Substance: DULOXETINE HYDROCHLORIDE
     Indication: DEPRESSION
     Dosage: UNK UNK, UNKNOWN
     Dates: start: 2005, end: 2007
  8. VENLAFAXIN [Concomitant]
     Active Substance: VENLAFAXINE HYDROCHLORIDE
     Indication: DEPRESSION
     Dosage: UNK, UNKNOWN
  9. ELONTRIL [Concomitant]
     Active Substance: BUPROPION HYDROCHLORIDE
     Indication: DEPRESSION
     Dosage: UNK UNK, UNKNOWN
     Dates: start: 2009, end: 2009
  10. OPIPRAMOL [Concomitant]
     Active Substance: OPIPRAMOL
     Dosage: UNK, UNKNOWN
     Route: 065
     Dates: start: 2011, end: 201602
  11. ZOLOFT [Suspect]
     Active Substance: SERTRALINE HYDROCHLORIDE
     Indication: DEPRESSION
     Dosage: UNK UNK, UNKNOWN
     Route: 065
     Dates: start: 2002, end: 2004

REACTIONS (5)
  - Benign prostatic hyperplasia [Not Recovered/Not Resolved]
  - Testicular atrophy [Not Recovered/Not Resolved]
  - Erectile dysfunction [Not Recovered/Not Resolved]
  - Genital discomfort [Not Recovered/Not Resolved]
  - Androgens decreased [Unknown]

NARRATIVE: CASE EVENT DATE: 2004
